FAERS Safety Report 4599528-3 (Version None)
Quarter: 2005Q1

REPORT INFORMATION
  Report Type: 
  Country: None (occurrence: None)
  Receive Date: 20050307
  Receipt Date: 20050222
  Transmission Date: 20050727
  Serious: Yes (Other)
  Sender: FDA-Public Use
  Company Number: US-JNJFOC-20041006225

PATIENT
  Sex: Male

DRUGS (3)
  1. TOPAMAX [Suspect]
     Indication: WEIGHT LOSS DIET
     Route: 049
     Dates: start: 20031001
  2. TOPAMAX [Suspect]
     Indication: DRUG THERAPY
     Route: 049
     Dates: start: 20031001
  3. ZYPREXA [Concomitant]

REACTIONS (1)
  - LIP AND/OR ORAL CAVITY CANCER [None]
